FAERS Safety Report 8071928-9 (Version None)
Quarter: 2012Q1

REPORT INFORMATION
  Report Type: 
  Country: None (occurrence: None)
  Receive Date: 20120124
  Receipt Date: 20120124
  Transmission Date: 20120608
  Serious: Yes (Hospitalization, Other)
  Sender: FDA-Public Use
  Company Number: None

PATIENT
  Sex: Female
  Weight: 89.8122 kg

DRUGS (1)
  1. LEVOFLOXACIN [Suspect]
     Indication: COUGH
     Dosage: 1 TABLET ONCE A DAY MOUTH
     Route: 048
     Dates: start: 20110919, end: 20110925

REACTIONS (17)
  - ANXIETY [None]
  - VISION BLURRED [None]
  - GENERAL SYMPTOM [None]
  - CONDUCTION DISORDER [None]
  - HYPOAESTHESIA [None]
  - TACHYCARDIA [None]
  - PALPITATIONS [None]
  - HYPOAESTHESIA ORAL [None]
  - PARAESTHESIA ORAL [None]
  - DYSPNOEA [None]
  - CHEST DISCOMFORT [None]
  - SENSATION OF PRESSURE [None]
  - CHEST PAIN [None]
  - PARAESTHESIA [None]
  - HYPERTENSION [None]
  - DIZZINESS [None]
  - PAIN [None]
